FAERS Safety Report 4983241-4 (Version None)
Quarter: 2006Q2

REPORT INFORMATION
  Report Type: 
  Country: None (occurrence: None)
  Receive Date: 20060419
  Receipt Date: 20060410
  Transmission Date: 20061013
  Serious: Yes (Death)
  Sender: FDA-Public Use
  Company Number: FR-2006-008327

PATIENT
  Age: 73 Year
  Sex: Male

DRUGS (11)
  1. MAGNEVIST                     (GADOPENTE DIMEGLUMINE) INJECTION [Suspect]
     Indication: COMPUTERISED TOMOGRAM THORAX
     Dosage: 1 DOSE, INTRAVENOUS
     Route: 042
     Dates: start: 20050407, end: 20050407
  2. PLAVIX [Concomitant]
  3. IKOREL               (NICORANDIL) [Concomitant]
  4. ZOCOR [Concomitant]
  5. FERROUS SULFATE TAB [Concomitant]
  6. OMEPRAZOLE [Concomitant]
  7. BISOPROLOL FUMARATE [Concomitant]
  8. RAMIPRIL [Concomitant]
  9. BUMETANIDE [Concomitant]
  10. INSULIN [Concomitant]
  11. EPINEPHRINE [Concomitant]

REACTIONS (19)
  - ACTIVATED PARTIAL THROMBOPLASTIN TIME PROLONGED [None]
  - ACUTE PULMONARY OEDEMA [None]
  - ACUTE RESPIRATORY DISTRESS SYNDROME [None]
  - BLOOD PRESSURE DECREASED [None]
  - CARDIO-RESPIRATORY ARREST [None]
  - CARDIOGENIC SHOCK [None]
  - CARDIOMEGALY [None]
  - CEREBRAL ATROPHY [None]
  - CHOLESTASIS [None]
  - CYTOLYTIC HEPATITIS [None]
  - HAEMODIALYSIS [None]
  - HAEMOGLOBIN DECREASED [None]
  - HEMIPLEGIA [None]
  - LEFT VENTRICULAR FAILURE [None]
  - MITRAL VALVE INCOMPETENCE [None]
  - MYOCARDIAL ISCHAEMIA [None]
  - RENAL FAILURE CHRONIC [None]
  - TACHYCARDIA [None]
  - WHITE BLOOD CELL COUNT DECREASED [None]
